FAERS Safety Report 9247440 (Version 1)
Quarter: 2013Q2

REPORT INFORMATION
  Report Type: Spontaneous
  Country: US (occurrence: US)
  Receive Date: 20130423
  Receipt Date: 20130423
  Transmission Date: 20140414
  Serious: No
  Sender: FDA-Public Use
  Company Number: US-MYLANLABS-2012S1012870

PATIENT
  Age: 57 Year
  Sex: Female

DRUGS (4)
  1. LUNESTA [Suspect]
     Indication: INSOMNIA
     Route: 048
     Dates: start: 2007, end: 20120529
  2. LORAZEPAM TABLETS, USP [Suspect]
     Indication: INSOMNIA
     Dates: end: 201205
  3. LEXAPRO [Concomitant]
  4. MELATONIN [Concomitant]
     Dates: start: 20120529, end: 20120530

REACTIONS (4)
  - Headache [Recovering/Resolving]
  - Hyperhidrosis [Not Recovered/Not Resolved]
  - Abnormal dreams [Not Recovered/Not Resolved]
  - Insomnia [Not Recovered/Not Resolved]
